FAERS Safety Report 21792639 (Version 2)
Quarter: 2023Q1

REPORT INFORMATION
  Report Type: Spontaneous
  Country: MX (occurrence: MX)
  Receive Date: 20221229
  Receipt Date: 20230123
  Transmission Date: 20230418
  Serious: Yes (Other)
  Sender: FDA-Public Use
  Company Number: MX-SUN PHARMACEUTICAL INDUSTRIES LTD-2022R1-370777

PATIENT
  Age: 17 Year
  Sex: Female

DRUGS (2)
  1. METHIMAZOLE [Suspect]
     Active Substance: METHIMAZOLE
     Indication: Basedow^s disease
     Dosage: 15 MILLIGRAM, TID
     Route: 048
     Dates: start: 20210609, end: 20210723
  2. METHIMAZOLE [Suspect]
     Active Substance: METHIMAZOLE
     Dosage: 0.75 MILLIGRAM/KILOGRAM, DAILY
     Route: 048
     Dates: start: 20210723, end: 20210727

REACTIONS (1)
  - Agranulocytosis [Recovering/Resolving]

NARRATIVE: CASE EVENT DATE: 20210719
